FAERS Safety Report 10200797 (Version 2)
Quarter: 2014Q2

REPORT INFORMATION
  Report Type: Spontaneous
  Country: DE (occurrence: DE)
  Receive Date: 20140528
  Receipt Date: 20140619
  Transmission Date: 20141212
  Serious: Yes (Other)
  Sender: FDA-Public Use
  Company Number: DE-ASTRAZENECA-2014SE34992

PATIENT
  Age: 32 Year
  Sex: Female

DRUGS (15)
  1. SEROQUEL [Suspect]
     Indication: DEPRESSION
     Route: 048
     Dates: start: 20120416, end: 20120531
  2. SEROQUEL [Suspect]
     Indication: DEPRESSION
     Route: 048
     Dates: start: 20120601, end: 20120601
  3. SEROQUEL [Suspect]
     Indication: DEPRESSION
     Route: 048
     Dates: start: 20120602, end: 20120605
  4. SEROQUEL [Suspect]
     Indication: DEPRESSION
     Route: 048
     Dates: start: 20120606
  5. SEROQUEL [Suspect]
     Indication: DEPRESSION
     Route: 048
     Dates: start: 20120412, end: 20120514
  6. SEROQUEL [Suspect]
     Indication: DEPRESSION
     Route: 048
     Dates: start: 20120515, end: 20120515
  7. VENLAFAXIN [Suspect]
     Indication: DEPRESSION
     Route: 048
     Dates: start: 20120504, end: 20120510
  8. VENLAFAXIN [Suspect]
     Indication: DEPRESSION
     Route: 048
     Dates: start: 20120511, end: 20120514
  9. VENLAFAXIN [Suspect]
     Indication: DEPRESSION
     Route: 048
     Dates: start: 20120515, end: 20120524
  10. VENLAFAXIN [Suspect]
     Indication: DEPRESSION
     Route: 048
     Dates: start: 20120525, end: 20120531
  11. VENLAFAXIN [Suspect]
     Indication: DEPRESSION
     Route: 048
     Dates: start: 20120601
  12. SERTRALIN [Suspect]
     Indication: DEPRESSION
     Route: 048
     Dates: end: 20120419
  13. SERTRALIN [Suspect]
     Indication: DEPRESSION
     Route: 048
     Dates: start: 20120420, end: 20120510
  14. SERTRALIN [Suspect]
     Indication: DEPRESSION
     Route: 048
     Dates: start: 20120511, end: 20120522
  15. SERTRALIN [Suspect]
     Indication: DEPRESSION
     Route: 048
     Dates: start: 20120523, end: 20120525

REACTIONS (1)
  - Dermatitis allergic [Recovered/Resolved]
